FAERS Safety Report 9611992 (Version 2)
Quarter: 2013Q4

REPORT INFORMATION
  Report Type: Spontaneous
  Country: US (occurrence: US)
  Receive Date: 20131010
  Receipt Date: 20131010
  Transmission Date: 20140711
  Serious: Yes (Disabling)
  Sender: FDA-Public Use
  Company Number: US-ROCHE-1281365

PATIENT
  Age: 36 Year
  Sex: Female
  Weight: 121.6 kg

DRUGS (14)
  1. KADCYLA [Suspect]
     Indication: BREAST CANCER METASTATIC
     Dosage: LAST DOSE AT REDUCED DOSE OF 2.88 MG/KG ON 27/SEP/2013
     Route: 042
     Dates: start: 20130524
  2. AMOXICILLIN/CLAVULANATE POTASSIUM [Concomitant]
     Indication: SINUSITIS
     Dosage: 875/125
     Route: 048
     Dates: start: 20130613, end: 20130623
  3. ALBUTEROL INHALER [Concomitant]
     Indication: WHEEZING
     Dosage: 2 PUFFS
     Route: 065
     Dates: start: 20130605
  4. AZITHROMYCIN [Concomitant]
     Indication: SINUSITIS
     Route: 048
     Dates: start: 20130605, end: 20130610
  5. CHOLECALCIFEROL [Concomitant]
     Route: 048
  6. ZOLEDRONIC ACID [Concomitant]
     Indication: METASTASES TO BONE
     Route: 042
     Dates: start: 20130904, end: 20130904
  7. PREDNISONE [Concomitant]
     Dosage: 12 HOURS BEFORE AND DAY AFTER KADCYLA
     Route: 065
  8. NAPROXEN [Concomitant]
     Route: 065
  9. LORAZEPAM [Concomitant]
     Indication: ANXIETY
     Route: 048
  10. MS CONTIN [Concomitant]
     Indication: PAIN
     Route: 065
  11. MS CONTIN [Concomitant]
     Route: 065
  12. HYDROXYZINE [Concomitant]
     Route: 065
  13. LORATADINE [Concomitant]
     Route: 065
  14. LOMOTIL (UNITED STATES) [Concomitant]
     Route: 065

REACTIONS (7)
  - Vision blurred [Not Recovered/Not Resolved]
  - Eye swelling [Not Recovered/Not Resolved]
  - Vision blurred [Not Recovered/Not Resolved]
  - Pupils unequal [Recovered/Resolved]
  - Blepharospasm [Recovered/Resolved]
  - Visual acuity reduced [Not Recovered/Not Resolved]
  - Astigmatism [Unknown]
